FAERS Safety Report 6840197-7 (Version None)
Quarter: 2010Q3

REPORT INFORMATION
  Report Type: 
  Country: None (occurrence: None)
  Receive Date: 20100713
  Receipt Date: 20100713
  Transmission Date: 20110219
  Serious: Yes (Hospitalization)
  Sender: FDA-Public Use
  Company Number: None

PATIENT
  Age: 61 Year
  Sex: Male
  Weight: 112.85 kg

DRUGS (1)
  1. GADOPENTETATE DIMEGLUMINE [Suspect]
     Indication: SCAN WITH CONTRAST
     Dosage: 20 ML OTHER IV
     Route: 042
     Dates: start: 20100614, end: 20100614

REACTIONS (4)
  - ASTHENIA [None]
  - HYPERHIDROSIS [None]
  - NAUSEA [None]
  - VOMITING [None]
